FAERS Safety Report 8079683-3 (Version None)
Quarter: 2012Q1

REPORT INFORMATION
  Report Type: 
  Country: None (occurrence: None)
  Receive Date: 20120128
  Receipt Date: 20110811
  Transmission Date: 20120608
  Serious: No
  Sender: FDA-Public Use
  Company Number: US-ABBOTT-11P-163-0845768-00

PATIENT
  Age: 52 Year
  Sex: Male

DRUGS (5)
  1. MESALAMINE [Concomitant]
     Indication: COLITIS ULCERATIVE
  2. RANITIDINE [Concomitant]
     Indication: GASTROOESOPHAGEAL REFLUX DISEASE
  3. HUMIRA [Suspect]
     Indication: COLITIS ULCERATIVE
     Dates: start: 20110101
  4. GABAPENTIN [Concomitant]
     Indication: COLITIS ULCERATIVE
  5. HUMIRA [Suspect]
     Dates: start: 20110701

REACTIONS (1)
  - HERPES ZOSTER [None]
